FAERS Safety Report 9995794 (Version 1)
Quarter: 2014Q1

REPORT INFORMATION
  Report Type: Spontaneous
  Country: US (occurrence: None)
  Receive Date: 20140304
  Receipt Date: 20140304
  Transmission Date: 20141002
  Serious: Yes (Other)
  Sender: FDA-Public Use
  Company Number: RB-56743-2013

PATIENT
  Sex: Male

DRUGS (8)
  1. SUBUTEX 8 MG [Suspect]
     Indication: DRUG DEPENDENCE
     Route: 064
     Dates: start: 2013, end: 2013
  2. HEROIN [Suspect]
     Indication: SUBSTANCE USE
     Route: 064
     Dates: end: 20130618
  3. COCAINE [Suspect]
     Indication: SUBSTANCE USE
     Route: 064
     Dates: end: 20130618
  4. MARIJUANA [Suspect]
     Indication: SUBSTANCE USE
     Route: 064
     Dates: end: 20130618
  5. XANAX [Suspect]
     Indication: ANXIETY
     Dosage: 1 MG 3-4 TIMES DAILY TRANSPLACENTAL
     Route: 064
     Dates: end: 2013
  6. NICOTINE (NONE) [Suspect]
     Indication: NICOTINE DEPENDENCE
     Route: 064
     Dates: end: 20130618
  7. ABILIFY [Suspect]
     Indication: DEPRESSION
     Route: 064
  8. AMITRIPTYLINE [Suspect]
     Indication: INSOMNIA
     Route: 064

REACTIONS (2)
  - Foetal exposure during pregnancy [None]
  - Agitation neonatal [None]
